FAERS Safety Report 9237316 (Version 2)
Quarter: 2013Q4

REPORT INFORMATION
  Report Type: Report from Study
  Country: BR (occurrence: BR)
  Receive Date: 20130417
  Receipt Date: 20131014
  Transmission Date: 20140711
  Serious: Yes (Other)
  Sender: FDA-Public Use
  Company Number: BR-ELI_LILLY_AND_COMPANY-BR201304002976

PATIENT
  Sex: Female
  Weight: 91 kg

DRUGS (8)
  1. TERIPARATIDE [Suspect]
     Indication: OSTEOPOROSIS
     Dosage: 20 UG, QD
     Route: 058
     Dates: start: 201004
  2. CORUS [Concomitant]
     Dosage: UNK, BID
     Route: 065
  3. VASTAREL [Concomitant]
     Dosage: UNK, BID
     Route: 065
  4. MONOCORDIL [Concomitant]
     Dosage: UNK, BID
     Route: 065
  5. SOMALGIN [Concomitant]
     Dosage: UNK, QD
     Route: 065
  6. CLOPINE [Concomitant]
     Dosage: UNK, QD
     Route: 065
  7. SINVASTATINA [Concomitant]
     Dosage: UNK, EACH EVENING
     Route: 065
  8. FUROSEMIDA                         /00032601/ [Concomitant]
     Dosage: UNK, EACH MORNING
     Route: 065

REACTIONS (5)
  - Infarction [Unknown]
  - Aortic aneurysm [Unknown]
  - Gastric disorder [Unknown]
  - Incorrect drug administration duration [Unknown]
  - Nausea [Unknown]
